FAERS Safety Report 15251997 (Version 1)
Quarter: 2018Q3

REPORT INFORMATION
  Report Type: Spontaneous
  Country: US (occurrence: US)
  Receive Date: 20180717
  Receipt Date: 20180717
  Transmission Date: 20181010
  Serious: Yes (Other)
  Sender: FDA-Public Use
  Company Number: None

PATIENT
  Age: 62 Year
  Sex: Male
  Weight: 78.3 kg

DRUGS (1)
  1. XARELTO [Suspect]
     Active Substance: RIVAROXABAN

REACTIONS (5)
  - Dysphagia [None]
  - Back pain [None]
  - Cerebrovascular accident [None]
  - Asthenia [None]
  - Urinary tract disorder [None]

NARRATIVE: CASE EVENT DATE: 20180314
